FAERS Safety Report 18049701 (Version 1)
Quarter: 2020Q3

REPORT INFORMATION
  Report Type: Spontaneous
  Country: ES (occurrence: ES)
  Receive Date: 20200721
  Receipt Date: 20200721
  Transmission Date: 20201103
  Serious: Yes (Hospitalization)
  Sender: FDA-Public Use
  Company Number: NVSC2020ES201593

PATIENT
  Age: 14 Year
  Sex: Male
  Weight: 22.5 kg

DRUGS (3)
  1. METAMIZOLE [Suspect]
     Active Substance: METAMIZOLE
     Indication: PAIN
     Dosage: 300 MG, Q8H
     Route: 042
     Dates: start: 20200518, end: 20200609
  2. TEICOPLANINA [Suspect]
     Active Substance: TEICOPLANIN
     Indication: PNEUMONIA
     Dosage: 12 MG, Q12H
     Route: 042
     Dates: start: 20200525, end: 20200602
  3. PIPERACILLIN,TAZOBACTAM [Suspect]
     Active Substance: PIPERACILLIN SODIUM\TAZOBACTAM SODIUM
     Indication: PNEUMONIA
     Dosage: 1 G, Q8H
     Route: 042
     Dates: start: 20200528, end: 20200605

REACTIONS (3)
  - Rash morbilliform [Recovered/Resolved]
  - Pyrexia [Recovered/Resolved]
  - Lymphadenopathy [Recovered/Resolved]

NARRATIVE: CASE EVENT DATE: 20200605
